FAERS Safety Report 8036920-9 (Version None)
Quarter: 2012Q1

REPORT INFORMATION
  Report Type: 
  Country: None (occurrence: None)
  Receive Date: 20120111
  Receipt Date: 20120105
  Transmission Date: 20120608
  Serious: Yes (Other)
  Sender: FDA-Public Use
  Company Number: US-PFIZER INC-2012004257

PATIENT
  Sex: Female

DRUGS (5)
  1. BACLOFEN [Concomitant]
     Dosage: UNK
  2. SERTRALINE HYDROCHLORIDE [Suspect]
     Dosage: 50 MG, 1X/DAY
     Route: 048
  3. AMPYRA [Suspect]
     Indication: GAIT DISTURBANCE
     Dosage: UNK
     Dates: start: 20110511, end: 20110606
  4. COPAXONE [Concomitant]
     Dosage: UNK
  5. VITAMIN D [Concomitant]
     Dosage: UNK

REACTIONS (1)
  - CONVULSION [None]
